FAERS Safety Report 8002957-9 (Version None)
Quarter: 2011Q4

REPORT INFORMATION
  Report Type: 
  Country: None (occurrence: None)
  Receive Date: 20111222
  Receipt Date: 20110509
  Transmission Date: 20120403
  Serious: No
  Sender: FDA-Public Use
  Company Number: US-GLAXOSMITHKLINE-A0926620A

PATIENT
  Age: 77 Year
  Sex: Male

DRUGS (2)
  1. AVODART [Suspect]
     Indication: BENIGN PROSTATIC HYPERPLASIA
     Dosage: .5MG PER DAY
     Route: 048
     Dates: start: 20110101
  2. NO CONCURRENT MEDICATION [Concomitant]

REACTIONS (4)
  - URINARY RETENTION [None]
  - FEELING ABNORMAL [None]
  - VISION BLURRED [None]
  - NERVOUSNESS [None]
